FAERS Safety Report 4492423-X (Version None)
Quarter: 2004Q4

REPORT INFORMATION
  Report Type: 
  Country: None (occurrence: None)
  Receive Date: 20041103
  Receipt Date: 20041103
  Transmission Date: 20050328
  Serious: Yes (Hospitalization)
  Sender: FDA-Public Use
  Company Number: None

PATIENT
  Age: 70 Year
  Sex: Male
  Weight: 111.1313 kg

DRUGS (10)
  1. GEMCITINE [Suspect]
     Indication: NON-SMALL CELL LUNG CANCER
     Dosage: 1464 MG  WEEKLY X2  INTRAVENOU
     Route: 042
     Dates: start: 20041001, end: 20041008
  2. ZOCOR [Concomitant]
  3. ASPIRIN [Concomitant]
  4. COUMADIN [Concomitant]
  5. ALBUTERAL NEBS [Concomitant]
  6. ATENOLOL [Concomitant]
  7. PAXIL [Concomitant]
  8. ALLEGRA [Concomitant]
  9. METHLPREDNISLONE [Concomitant]
  10. PHENERGAN WITH CODIENE [Concomitant]

REACTIONS (4)
  - DRUG TOXICITY [None]
  - HYPOXIA [None]
  - PULMONARY TOXICITY [None]
  - RESPIRATORY FAILURE [None]
